FAERS Safety Report 6086044-5 (Version None)
Quarter: 2009Q1

REPORT INFORMATION
  Report Type: 
  Country: None (occurrence: None)
  Receive Date: 20090220
  Receipt Date: 20090212
  Transmission Date: 20090719
  Serious: Yes (Other)
  Sender: FDA-Public Use
  Company Number: BR-ABBOTT-09P-020-0557254-00

PATIENT
  Age: 27 Year
  Sex: Male
  Weight: 120 kg

DRUGS (5)
  1. DEPAKENE [Suspect]
     Indication: MIGRAINE
     Route: 048
  2. DEPAKENE [Suspect]
     Indication: CEREBRAL DISORDER
  3. UNKNOWN MAGISTRAL FORMULA [Concomitant]
     Indication: MIGRAINE
     Route: 048
     Dates: start: 20070201
  4. UNKNOWN MAGISTRAL FORMULA [Concomitant]
     Indication: ANXIETY
  5. UNKNOWN MAGISTRAL FORMULA [Concomitant]
     Indication: SLEEP DISORDER THERAPY

REACTIONS (2)
  - FALL [None]
  - WEIGHT INCREASED [None]
